FAERS Safety Report 6366569-5 (Version None)
Quarter: 2009Q3

REPORT INFORMATION
  Report Type: 
  Country: None (occurrence: None)
  Receive Date: 20090921
  Receipt Date: 20090911
  Transmission Date: 20100115
  Serious: Yes (Other)
  Sender: FDA-Public Use
  Company Number: DE-ASTRAZENECA-2009SE12888

PATIENT
  Sex: Female

DRUGS (1)
  1. SCANDICAIN [Suspect]
     Route: 042

REACTIONS (9)
  - ABDOMINAL PAIN [None]
  - CIRCULATORY COLLAPSE [None]
  - DRUG ADMINISTRATION ERROR [None]
  - FAECES DISCOLOURED [None]
  - GASTRITIS EROSIVE [None]
  - HYPOAESTHESIA [None]
  - HYPOKINESIA [None]
  - HYPOTENSION [None]
  - LIVER INJURY [None]
